FAERS Safety Report 4916679-1 (Version None)
Quarter: 2006Q1

REPORT INFORMATION
  Report Type: 
  Country: None (occurrence: None)
  Receive Date: 20060113
  Receipt Date: 20051012
  Transmission Date: 20060701
  Serious: No
  Sender: FDA-Public Use
  Company Number: 2005SP003509

PATIENT
  Age: 54 Year
  Sex: Female

DRUGS (8)
  1. LUNESTA [Suspect]
     Dosage: 2 MG; HS; ORAL
     Route: 048
     Dates: start: 20051011
  2. PHENYTOIN [Concomitant]
  3. ATORVASTATIN CALCIUM [Concomitant]
  4. OXYCODONE [Concomitant]
  5. XANAX [Concomitant]
  6. DEXAMETHASONE TAB [Concomitant]
  7. PAXIL [Concomitant]
  8. FOLIC ACID [Concomitant]

REACTIONS (3)
  - DRUG INEFFECTIVE [None]
  - INSOMNIA [None]
  - RESTLESSNESS [None]
